FAERS Safety Report 19115856 (Version 1)
Quarter: 2021Q2

REPORT INFORMATION
  Report Type: Spontaneous
  Country: NL (occurrence: NL)
  Receive Date: 20210409
  Receipt Date: 20210409
  Transmission Date: 20210717
  Serious: Yes (Other)
  Sender: FDA-Public Use
  Company Number: NL-TEVA-2021-NL-1899224

PATIENT
  Age: 51 Year
  Sex: Female
  Weight: 80 kg

DRUGS (1)
  1. VALPROINEZUUR TABLET MGA 300MG (ZUUR+NA?ZOUT) / NATRIUMVALPROAAT TEVA [Suspect]
     Active Substance: VALPROATE SODIUM
     Indication: IRRITABILITY
     Dosage: 1DD,  600MG
     Route: 065
     Dates: start: 20210204, end: 20210306

REACTIONS (3)
  - Liver function test increased [Recovering/Resolving]
  - Cholelithiasis [Recovering/Resolving]
  - Therapeutic response unexpected [Unknown]

NARRATIVE: CASE EVENT DATE: 20210227
